FAERS Safety Report 24677024 (Version 2)
Quarter: 2025Q1

REPORT INFORMATION
  Report Type: Report from Study
  Country: US (occurrence: US)
  Receive Date: 20241128
  Receipt Date: 20250223
  Transmission Date: 20250409
  Serious: Yes (Death, Hospitalization, Other)
  Sender: ABBVIE
  Company Number: US-ABBVIE-6021601

PATIENT
  Age: 62 Year
  Sex: Female

DRUGS (1)
  1. CREON [Suspect]
     Active Substance: PANCRELIPASE AMYLASE\PANCRELIPASE LIPASE\PANCRELIPASE PROTEASE
     Indication: Product used for unknown indication
     Route: 048
     Dates: start: 20240624

REACTIONS (4)
  - Metastases to spine [Fatal]
  - Metastases to liver [Fatal]
  - Abdominal pain [Unknown]
  - Metastases to stomach [Fatal]

NARRATIVE: CASE EVENT DATE: 20240101
